FAERS Safety Report 26056378 (Version 1)
Quarter: 2025Q4

REPORT INFORMATION
  Report Type: Spontaneous
  Country: EU (occurrence: EU)
  Receive Date: 20251118
  Receipt Date: 20251118
  Transmission Date: 20260118
  Serious: Yes (Other)
  Sender: AMGEN
  Company Number: EU-009507513-2345175

PATIENT
  Age: 63 Year
  Sex: Female

DRUGS (4)
  1. BEVACIZUMAB [Suspect]
     Active Substance: BEVACIZUMAB
     Indication: Squamous cell carcinoma of the cervix
     Dosage: 15 MILLIGRAM/KILOGRAM, Q3WK
     Route: 065
     Dates: start: 202504, end: 202510
  2. PEMBROLIZUMAB [Suspect]
     Active Substance: PEMBROLIZUMAB
     Indication: Squamous cell carcinoma of the cervix
     Dosage: 200 MILLIGRAM, Q3WK
     Route: 065
     Dates: start: 202504, end: 202510
  3. CARBOPLATIN [Suspect]
     Active Substance: CARBOPLATIN
     Indication: Squamous cell carcinoma of the cervix
     Dosage: AREA UNDER THE CURVE (AUC) 5
     Route: 065
     Dates: start: 202504, end: 202510
  4. PACLITAXEL [Suspect]
     Active Substance: PACLITAXEL
     Indication: Squamous cell carcinoma of the cervix
     Dosage: 6 CYCLES
     Route: 065
     Dates: start: 202504, end: 202510

REACTIONS (7)
  - Genital haemorrhage [Unknown]
  - Diabetes mellitus inadequate control [Unknown]
  - Peripheral sensorimotor neuropathy [Unknown]
  - Anaemia [Unknown]
  - Female genital tract fistula [Unknown]
  - Urinary tract infection [Unknown]
  - Proteinuria [Unknown]

NARRATIVE: CASE EVENT DATE: 20250101
